FAERS Safety Report 7159029-5 (Version None)
Quarter: 2010Q4

REPORT INFORMATION
  Report Type: 
  Country: None (occurrence: None)
  Receive Date: 20101214
  Receipt Date: 20101206
  Transmission Date: 20110411
  Serious: Yes (Other)
  Sender: FDA-Public Use
  Company Number: AU-PFIZER INC-2010166381

PATIENT
  Sex: Female

DRUGS (4)
  1. LYRICA [Suspect]
     Indication: NEURALGIA
     Dosage: 75 MG, 1X/DAY
  2. ENDONE [Concomitant]
     Dosage: UNK
  3. ENDEP [Concomitant]
     Dosage: 25 MG, 1X/DAY
  4. STILNOX [Concomitant]
     Dosage: UNK

REACTIONS (4)
  - BALANCE DISORDER [None]
  - DEPRESSED LEVEL OF CONSCIOUSNESS [None]
  - DIZZINESS [None]
  - FLATULENCE [None]
